FAERS Safety Report 4452494-3 (Version None)
Quarter: 2004Q3

REPORT INFORMATION
  Report Type: 
  Country: None (occurrence: None)
  Receive Date: 20040916
  Receipt Date: 20040831
  Transmission Date: 20050211
  Serious: Yes (Hospitalization)
  Sender: FDA-Public Use
  Company Number: DSA_24946_2004

PATIENT
  Age: 78 Year
  Sex: Female

DRUGS (2)
  1. HERBESSER R [Suspect]
     Indication: TACHYARRHYTHMIA
     Dosage: 200 MG Q DAY PO
     Route: 048
     Dates: start: 20040405, end: 20040409
  2. NU LOTAN [Concomitant]

REACTIONS (5)
  - ERYTHEMA [None]
  - LABORATORY TEST ABNORMAL [None]
  - PYREXIA [None]
  - RASH PUSTULAR [None]
  - WHITE BLOOD CELL COUNT INCREASED [None]
